FAERS Safety Report 13717818 (Version 1)
Quarter: 2017Q3

REPORT INFORMATION
  Report Type: Spontaneous
  Country: US (occurrence: US)
  Receive Date: 20170705
  Receipt Date: 20170705
  Transmission Date: 20171127
  Serious: No
  Sender: FDA-Public Use
  Company Number: US-ALLERGAN-1704637US

PATIENT
  Age: 36 Year
  Sex: Female

DRUGS (2)
  1. IBUPROFEN. [Concomitant]
     Active Substance: IBUPROFEN
     Indication: PRODUCT USED FOR UNKNOWN INDICATION
     Route: 042
  2. DALVANCE [Suspect]
     Active Substance: DALBAVANCIN
     Indication: SOFT TISSUE INFECTION
     Dosage: 1500 MG, SINGLE
     Dates: start: 20170206

REACTIONS (1)
  - Hypersensitivity [Unknown]
